FAERS Safety Report 10949230 (Version 1)
Quarter: 2015Q1

REPORT INFORMATION
  Report Type: Spontaneous
  Country: US (occurrence: None)
  Receive Date: 20150323
  Receipt Date: 20150323
  Transmission Date: 20150721
  Serious: Yes (Life-Threatening, Disabling)
  Sender: FDA-Public Use
  Company Number: None

PATIENT
  Age: 35 Year
  Sex: Female
  Weight: 45.36 kg

DRUGS (1)
  1. CIPROFLOXACIN HCL [Suspect]
     Active Substance: CIPROFLOXACIN HYDROCHLORIDE
     Indication: URINARY TRACT INFECTION
     Dosage: 1
     Route: 048
     Dates: start: 20141101, end: 20141110

REACTIONS (14)
  - Visual impairment [None]
  - Muscle disorder [None]
  - Panic attack [None]
  - Hypoaesthesia [None]
  - Depression [None]
  - Skin burning sensation [None]
  - Balance disorder [None]
  - Dizziness [None]
  - Cerebral disorder [None]
  - Fatigue [None]
  - Anxiety [None]
  - Discomfort [None]
  - Insomnia [None]
  - Asthenia [None]

NARRATIVE: CASE EVENT DATE: 20150321
